FAERS Safety Report 17911224 (Version 1)
Quarter: 2020Q2

REPORT INFORMATION
  Report Type: Spontaneous
  Country: US (occurrence: US)
  Receive Date: 20200618
  Receipt Date: 20200618
  Transmission Date: 20200714
  Serious: No
  Sender: FDA-Public Use
  Company Number: US-UNITED THERAPEUTICS-UNT-2020-004327

PATIENT
  Age: 21 Year
  Sex: Female

DRUGS (2)
  1. REMODULIN [Suspect]
     Active Substance: TREPROSTINIL
     Indication: PULMONARY ARTERIAL HYPERTENSION
     Dosage: 0.0355 ?G/KG, CONTINUING
     Route: 058
     Dates: start: 20190614, end: 20200314
  2. REMODULIN [Suspect]
     Active Substance: TREPROSTINIL
     Dosage: 0.0259 ?G/KG, CONTINUING (LOWERED DOSE)
     Route: 058
     Dates: start: 2020

REACTIONS (4)
  - Intentional dose omission [Unknown]
  - Feeling hot [Unknown]
  - Intentional product use issue [Unknown]
  - Headache [Unknown]

NARRATIVE: CASE EVENT DATE: 2020
